FAERS Safety Report 26148591 (Version 1)
Quarter: 2025Q4

REPORT INFORMATION
  Report Type: Report from Study
  Country: CA (occurrence: CA)
  Receive Date: 20251212
  Receipt Date: 20251212
  Transmission Date: 20260118
  Serious: Yes (Hospitalization, Other)
  Sender: AMGEN
  Company Number: CA-AMGEN-CANSL2024029467

PATIENT
  Age: 69 Year
  Sex: Female

DRUGS (7)
  1. AVSOLA [Suspect]
     Active Substance: INFLIXIMAB-AXXQ
     Indication: Rheumatoid arthritis
     Dosage: 400 MILLIGRAM, Q6WK
     Route: 065
     Dates: start: 20220505
  2. AVSOLA [Suspect]
     Active Substance: INFLIXIMAB-AXXQ
     Dosage: 400 MILLIGRAM, Q2WK
     Route: 065
  3. AVSOLA [Suspect]
     Active Substance: INFLIXIMAB-AXXQ
     Dosage: 400 MILLIGRAM, Q6WK
     Route: 065
  4. AVSOLA [Suspect]
     Active Substance: INFLIXIMAB-AXXQ
     Dosage: 400 MILLIGRAM, Q6WK
     Route: 065
  5. VARENICLINE TARTRATE [Concomitant]
     Active Substance: VARENICLINE TARTRATE
     Dosage: UNK
     Route: 065
  6. ASPIRIN [Concomitant]
     Active Substance: ASPIRIN
     Indication: Blood cholesterol increased
     Dosage: FOR 6 MONTHS
     Route: 065
  7. PLAVIX [Concomitant]
     Active Substance: CLOPIDOGREL BISULFATE
     Indication: Blood cholesterol increased

REACTIONS (13)
  - Diverticulitis [Unknown]
  - COVID-19 [Unknown]
  - Oral candidiasis [Not Recovered/Not Resolved]
  - General physical health deterioration [Unknown]
  - Myocardial necrosis marker increased [Unknown]
  - Coronary artery occlusion [Unknown]
  - Ulcer [Recovered/Resolved]
  - Decreased immune responsiveness [Unknown]
  - Culture positive [Unknown]
  - White blood cell count decreased [Unknown]
  - Hypophagia [Unknown]
  - Weight decreased [Unknown]
  - Arthralgia [Unknown]

NARRATIVE: CASE EVENT DATE: 20230822
